FAERS Safety Report 4593081-6 (Version None)
Quarter: 2005Q1

REPORT INFORMATION
  Report Type: 
  Country: None (occurrence: None)
  Receive Date: 20050301
  Receipt Date: 20050215
  Transmission Date: 20050727
  Serious: Yes (Other)
  Sender: FDA-Public Use
  Company Number: JP-SOLVAY-00305000572

PATIENT
  Age: 19 Year
  Sex: Female
  Weight: 45 kg

DRUGS (7)
  1. DEPROMEL 25 [Suspect]
     Indication: DEPRESSION
     Dosage: DAILY DOSE:  UNKNOWN
     Route: 048
  2. LEXOTAN [Suspect]
     Indication: ILL-DEFINED DISORDER
     Dosage: DAILY DOSE:  UNKNOWN
     Route: 048
  3. SILECE [Suspect]
     Indication: ILL-DEFINED DISORDER
     Dosage: DAILY DOSE:  UNKNOWN
     Route: 048
  4. DEPAS [Suspect]
     Indication: ILL-DEFINED DISORDER
     Dosage: DAILY DOSE:  UNKNOWN
     Route: 048
  5. MIRADOL [Suspect]
     Indication: ILL-DEFINED DISORDER
     Dosage: DAILY DOSE:  UNKNOWN
     Route: 048
  6. IBU [Suspect]
     Indication: ILL-DEFINED DISORDER
     Dosage: DAILY DOSE: 10 DOSAGE FORM
     Route: 065
     Dates: start: 20030516, end: 20030516
  7. PABURON S 6P [Suspect]
     Indication: ILL-DEFINED DISORDER
     Dosage: DAILY DOSE: 1800 MILLIGRAM(S)
     Route: 065
     Dates: start: 20030516, end: 20030516

REACTIONS (3)
  - INTENTIONAL MISUSE [None]
  - PNEUMATOSIS CYSTOIDES INTESTINALIS [None]
  - SUICIDE ATTEMPT [None]
